FAERS Safety Report 24338345 (Version 2)
Quarter: 2024Q4

REPORT INFORMATION
  Report Type: Spontaneous
  Country: IT (occurrence: IT)
  Receive Date: 20240919
  Receipt Date: 20241004
  Transmission Date: 20250115
  Serious: Yes (Other)
  Sender: TEVA
  Company Number: IT-TEVA-VS-3242685

PATIENT
  Age: 52 Year
  Sex: Male

DRUGS (4)
  1. DICLOFENAC [Suspect]
     Active Substance: DICLOFENAC
     Indication: Analgesic intervention supportive therapy
     Dosage: DROPS
     Route: 061
  2. DEXPANTHENOL [Concomitant]
     Active Substance: DEXPANTHENOL
     Indication: Eye lubrication therapy
     Dosage: AT NIGHT
     Route: 061
  3. BENOXINATE [Suspect]
     Active Substance: BENOXINATE
     Indication: Local anaesthesia
     Dosage: 4 MG/ML
     Route: 061
  4. HYALURONIC ACID [Concomitant]
     Active Substance: HYALURONIC ACID
     Indication: Eye lubrication therapy
     Dosage: 4 TO 6 TIMES A DAY, DROPS
     Route: 061

REACTIONS (3)
  - Corneal perforation [Recovered/Resolved]
  - Corneal disorder [Recovered/Resolved]
  - Ulcerative keratitis [Recovered/Resolved]
